FAERS Safety Report 5591622-3 (Version None)
Quarter: 2008Q1

REPORT INFORMATION
  Report Type: 
  Country: None (occurrence: None)
  Receive Date: 20080115
  Receipt Date: 20080104
  Transmission Date: 20080703
  Serious: Yes (Death, Hospitalization)
  Sender: FDA-Public Use
  Company Number: US-ROCHE-539852

PATIENT
  Age: 59 Year
  Sex: Male
  Weight: 70 kg

DRUGS (9)
  1. CAPECITABINE [Suspect]
     Dosage: GIVEN ON DAYS 1-14 OF EACH 21-DAY-CYCLE.
     Route: 048
     Dates: start: 20071116, end: 20071228
  2. CETUXIMAB [Suspect]
     Dosage: 400/M2 ONE DOSE AND THEREAFTER 250 MG/M2 WEEKLY GIVEN OVER 60-120 MINUTES ON DAYS 1, 8, AND 15 OF E+
     Route: 042
     Dates: start: 20071116, end: 20071228
  3. OXALIPLATIN [Suspect]
     Dosage: GIVEN OVER 120 MINUTES ON DAY ONE OF EACH 21-DAY-CYCLE.
     Route: 042
     Dates: start: 20071116, end: 20071228
  4. OXYCODONE [Concomitant]
     Dosage: TAKEN AS NEEDED.
  5. LASIX [Concomitant]
     Route: 048
  6. DEXAMETHASONE TAB [Concomitant]
     Indication: NAUSEA
     Dosage: TAKEN AS NEEDED.
     Route: 048
  7. COMPAZINE [Concomitant]
     Indication: NAUSEA
     Dosage: TAKEN AS NEEDED.
     Route: 048
  8. ZOFRAN [Concomitant]
     Indication: NAUSEA
     Dosage: TAKEN AS NEEDED.
     Route: 048
  9. MEGACE [Concomitant]
     Dosage: MEGACE ES. DOSING AMOUNT: 625 MG/5 ML.

REACTIONS (5)
  - CLOSTRIDIUM DIFFICILE TOXIN TEST POSITIVE [None]
  - DEATH [None]
  - METABOLIC ACIDOSIS [None]
  - RENAL FAILURE ACUTE [None]
  - RESPIRATORY ALKALOSIS [None]
